FAERS Safety Report 26122396 (Version 1)
Quarter: 2025Q4

REPORT INFORMATION
  Report Type: Spontaneous
  Country: US (occurrence: None)
  Receive Date: 20251204
  Receipt Date: 20251204
  Transmission Date: 20260117
  Serious: No
  Sender: FDA-CTU
  Company Number: None

PATIENT
  Sex: Male

DRUGS (2)
  1. ALHEMO [Suspect]
     Active Substance: CONCIZUMAB-MTCI
     Indication: Factor IX deficiency
     Dosage: FREQUENCY : DAILY;?
     Route: 058
     Dates: start: 20250625
  2. NOVOSEVEN RT [Concomitant]
     Active Substance: COAGULATION FACTOR VIIA RECOMBINANT HUMAN

REACTIONS (3)
  - Muscle haemorrhage [None]
  - Pain [None]
  - Haemarthrosis [None]
